FAERS Safety Report 23638889 (Version 1)
Quarter: 2024Q1

REPORT INFORMATION
  Report Type: Spontaneous
  Country: PT (occurrence: PT)
  Receive Date: 20240315
  Receipt Date: 20240315
  Transmission Date: 20240410
  Serious: Yes (Other)
  Sender: FDA-Public Use
  Company Number: None

PATIENT
  Age: 59 Year
  Sex: Male
  Weight: 75 kg

DRUGS (1)
  1. DESLORATADINE\PSEUDOEPHEDRINE [Suspect]
     Active Substance: DESLORATADINE\PSEUDOEPHEDRINE
     Dosage: UNK
     Route: 048
     Dates: start: 20240116, end: 20240117

REACTIONS (1)
  - Oliguria [Recovered/Resolved]

NARRATIVE: CASE EVENT DATE: 20240116
